FAERS Safety Report 11112795 (Version 1)
Quarter: 2015Q2

REPORT INFORMATION
  Report Type: Spontaneous
  Country: US (occurrence: US)
  Receive Date: 20150514
  Receipt Date: 20150514
  Transmission Date: 20150821
  Serious: No
  Sender: FDA-Public Use
  Company Number: US-009507513-1505USA001658

PATIENT
  Sex: Male

DRUGS (5)
  1. NASONEX [Suspect]
     Active Substance: MOMETASONE FUROATE
     Dosage: 2 PUFFS IN EACH NOSTRIL, TWICE A DAY
     Route: 045
     Dates: end: 20150501
  2. XOLAIR [Concomitant]
     Active Substance: OMALIZUMAB
  3. NASONEX [Suspect]
     Active Substance: MOMETASONE FUROATE
     Indication: UPPER-AIRWAY COUGH SYNDROME
     Dosage: 1 PUFF IN EACH NOSTRIL/TWICE A DAY
     Route: 045
  4. ASMANEX [Concomitant]
     Active Substance: MOMETASONE FUROATE
  5. LUPRON [Concomitant]
     Active Substance: LEUPROLIDE ACETATE

REACTIONS (2)
  - Lower respiratory tract infection [Recovered/Resolved]
  - Increased upper airway secretion [Recovered/Resolved]
